FAERS Safety Report 7893178-9 (Version None)
Quarter: 2011Q4

REPORT INFORMATION
  Report Type: 
  Country: None (occurrence: None)
  Receive Date: 20111104
  Receipt Date: 20111026
  Transmission Date: 20120403
  Serious: Yes (Hospitalization)
  Sender: FDA-Public Use
  Company Number: PHHO2011JP18093

PATIENT
  Sex: Male
  Weight: 62 kg

DRUGS (3)
  1. SPA100A [Suspect]
     Dosage: 1DF DAILY
     Route: 048
     Dates: start: 20110203, end: 20111017
  2. PRAVASTATIN SODIUM [Concomitant]
     Indication: HYPERLIPIDAEMIA
     Dosage: 5 MG, UNK
     Route: 048
     Dates: start: 20110203, end: 20111017
  3. SPA100A [Suspect]
     Indication: HYPERTENSION
     Dosage: 1DF DAILY
     Route: 048
     Dates: start: 20101209, end: 20110202

REACTIONS (1)
  - PNEUMONIA [None]
